FAERS Safety Report 5271004-4 (Version None)
Quarter: 2007Q1

REPORT INFORMATION
  Report Type: 
  Country: None (occurrence: None)
  Receive Date: 20061214
  Receipt Date: 20060809
  Transmission Date: 20070707
  Serious: Yes (Hospitalization, Other)
  Sender: FDA-Public Use
  Company Number: 2005142324

PATIENT
  Age: 56 Year
  Sex: Male

DRUGS (6)
  1. BEXTRA [Suspect]
     Indication: BACK PAIN
     Dosage: 2 MG (20 MG, 1 IN 1 D), ORAL
     Route: 048
     Dates: start: 20031013, end: 20041010
  2. ZOCOR [Concomitant]
  3. PREVACID [Concomitant]
  4. CELEXA [Concomitant]
  5. ALLEGRA [Concomitant]
  6. DOXAZOSIN (DOXAZOSIN) [Concomitant]

REACTIONS (2)
  - ATRIOVENTRICULAR BLOCK COMPLETE [None]
  - CORONARY ARTERY OCCLUSION [None]
